FAERS Safety Report 6425413-8 (Version None)
Quarter: 2009Q4

REPORT INFORMATION
  Report Type: 
  Country: None (occurrence: None)
  Receive Date: 20091102
  Receipt Date: 20091102
  Transmission Date: 20100525
  Serious: Yes (Hospitalization)
  Sender: FDA-Public Use
  Company Number: None

PATIENT
  Age: 48 Year
  Sex: Male
  Weight: 127.6 kg

DRUGS (2)
  1. BEVACIZUMAB [Suspect]
     Indication: NEOPLASM
     Dosage: 500 MG ONCE IV; 400 MG ONCE IV
     Route: 042
     Dates: start: 20091021, end: 20091021
  2. BEVACIZUMAB [Suspect]
     Indication: NEOPLASM
     Dosage: 500 MG ONCE IV; 400 MG ONCE IV
     Route: 042
     Dates: start: 20091021, end: 20091021

REACTIONS (5)
  - FLUID INTAKE REDUCED [None]
  - HYPOVOLAEMIA [None]
  - NAUSEA [None]
  - RENAL FAILURE ACUTE [None]
  - VOMITING [None]
